FAERS Safety Report 25359398 (Version 2)
Quarter: 2025Q4

REPORT INFORMATION
  Report Type: Spontaneous
  Country: US (occurrence: US)
  Receive Date: 20250526
  Receipt Date: 20251021
  Transmission Date: 20260118
  Serious: Yes (Other)
  Sender: BRISTOL-MYERS SQUIBB COMPANY
  Company Number: US-BRISTOL-MYERS SQUIBB COMPANY-2025-072202

PATIENT
  Age: 68 Year
  Sex: Female

DRUGS (2)
  1. POMALYST [Suspect]
     Active Substance: POMALIDOMIDE
     Indication: Plasma cell myeloma
     Dosage: 1  TIME A DAY FOR 21 DAYS ON THEN 7 DAYS OFF.
     Dates: start: 202503
  2. POMALYST [Suspect]
     Active Substance: POMALIDOMIDE
     Dates: start: 202503

REACTIONS (3)
  - Pneumonia [Recovering/Resolving]
  - Aphonia [Not Recovered/Not Resolved]
  - Memory impairment [Unknown]
